FAERS Safety Report 4683290-X (Version None)
Quarter: 2005Q2

REPORT INFORMATION
  Report Type: 
  Country: None (occurrence: None)
  Receive Date: 20050606
  Receipt Date: 20050606
  Transmission Date: 20051028
  Serious: Yes (Other)
  Sender: FDA-Public Use
  Company Number: None

PATIENT
  Age: 9 Year
  Sex: Male
  Weight: 36.7414 kg

DRUGS (1)
  1. LITHIUM CARBONATE 300 MG ABLE LABORATORIES [Suspect]
     Indication: BIPOLAR DISORDER
     Dosage: 1 3 TIMES A DAY ORAL
     Route: 048
     Dates: start: 20050401, end: 20050526

REACTIONS (10)
  - ABNORMAL BEHAVIOUR [None]
  - AGGRESSION [None]
  - DEPRESSION [None]
  - HALLUCINATION, AUDITORY [None]
  - HOSTILITY [None]
  - MANIA [None]
  - PHARMACEUTICAL PRODUCT COMPLAINT [None]
  - REGRESSIVE BEHAVIOUR [None]
  - THINKING ABNORMAL [None]
  - VERBAL ABUSE [None]
